FAERS Safety Report 15451922 (Version 7)
Quarter: 2019Q2

REPORT INFORMATION
  Report Type: Report from Study
  Country: US (occurrence: US)
  Receive Date: 20181001
  Receipt Date: 20190408
  Transmission Date: 20190711
  Serious: Yes (Hospitalization)
  Sender: FDA-Public Use
  Company Number: US-ROCHE-2177064

PATIENT
  Age: 67 Year
  Sex: Male
  Weight: 72.5 kg

DRUGS (57)
  1. ONCOVIN [Suspect]
     Active Substance: VINCRISTINE SULFATE
     Indication: RICHTER^S SYNDROME
     Route: 042
     Dates: start: 20180816, end: 20180820
  2. CYCLOPHOSPHAMIDE. [Suspect]
     Active Substance: CYCLOPHOSPHAMIDE
     Route: 042
     Dates: start: 20180821, end: 20181218
  3. ALLEGRA [Concomitant]
     Active Substance: FEXOFENADINE HYDROCHLORIDE
  4. VENETOCLAX. [Suspect]
     Active Substance: VENETOCLAX
     Route: 048
     Dates: start: 20190124, end: 20190128
  5. FENTANYL. [Concomitant]
     Active Substance: FENTANYL
  6. LACTULOSE. [Concomitant]
     Active Substance: LACTULOSE
  7. ZOFRAN [Concomitant]
     Active Substance: ONDANSETRON HYDROCHLORIDE
     Indication: NAUSEA
     Dosage: MOST RECENT DOSE ON 22/FEB/2019
     Route: 048
  8. FINASTERIDE. [Concomitant]
     Active Substance: FINASTERIDE
  9. VALTREX [Concomitant]
     Active Substance: VALACYCLOVIR HYDROCHLORIDE
     Dosage: MOST RECENT DOSE ON 21/FEB/2019
     Route: 048
  10. VENETOCLAX. [Suspect]
     Active Substance: VENETOCLAX
     Dosage: 20 MG OF ABT-199 ON WEEK 1 DAY 1, 50 MG ON DAY 2, 100 MG ON DAY 3, 200 MG ON DAY 4, 400 MG ON DAY 5,
     Route: 048
     Dates: start: 20180910
  11. VENETOCLAX. [Suspect]
     Active Substance: VENETOCLAX
     Route: 048
     Dates: start: 20190129, end: 20190218
  12. RITUXIMAB. [Suspect]
     Active Substance: RITUXIMAB
     Indication: RICHTER^S SYNDROME
     Route: 042
     Dates: start: 20180816
  13. CYCLOPHOSPHAMIDE. [Suspect]
     Active Substance: CYCLOPHOSPHAMIDE
     Indication: RICHTER^S SYNDROME
     Route: 042
     Dates: start: 20180815
  14. GUAIFENESIN. [Concomitant]
     Active Substance: GUAIFENESIN
  15. BACTRIM [Concomitant]
     Active Substance: SULFAMETHOXAZOLE\TRIMETHOPRIM
     Dosage: FORM STRENGTH: 800 MG/160 MG PER TABLET
     Route: 048
  16. MIRALAX [Concomitant]
     Active Substance: POLYETHYLENE GLYCOL 3350
     Route: 048
  17. CETRIZINE [Concomitant]
     Active Substance: CETIRIZINE HYDROCHLORIDE
  18. COLACE [Concomitant]
     Active Substance: DOCUSATE SODIUM
  19. FLOMAX [Concomitant]
     Active Substance: TAMSULOSIN HYDROCHLORIDE
  20. ALLOPURINOL. [Concomitant]
     Active Substance: ALLOPURINOL
  21. ESOMEPRAZOLE. [Concomitant]
     Active Substance: ESOMEPRAZOLE MAGNESIUM
  22. KENALOG [Concomitant]
     Active Substance: TRIAMCINOLONE ACETONIDE
  23. PAROEX [Concomitant]
     Active Substance: CHLORHEXIDINE GLUCONATE
     Dosage: SWISH AND SPIT?MOST RECENT DOSE ON 21/FEB/2019
     Route: 065
  24. LEXAPRO [Concomitant]
     Active Substance: ESCITALOPRAM OXALATE
     Dosage: MOST RECENT DOSE ON 21/FEB/2019
     Route: 048
  25. FLEXERIL [Concomitant]
     Active Substance: CYCLOBENZAPRINE HYDROCHLORIDE
     Route: 048
  26. NOXAFIL [Concomitant]
     Active Substance: POSACONAZOLE
     Route: 048
  27. PREDNISONE. [Suspect]
     Active Substance: PREDNISONE
     Indication: RICHTER^S SYNDROME
     Dosage: FOR 5 DAYS
     Route: 048
     Dates: start: 20180816, end: 20180821
  28. PREDNISONE. [Suspect]
     Active Substance: PREDNISONE
     Dosage: FOR 5 DAYS
     Route: 048
     Dates: start: 20180911, end: 20181218
  29. ONCOVIN [Suspect]
     Active Substance: VINCRISTINE SULFATE
     Route: 042
     Dates: start: 20180911, end: 20181218
  30. DICYCLOMINE [Concomitant]
     Active Substance: DICYCLOMINE HYDROCHLORIDE
  31. LASIX [Concomitant]
     Active Substance: FUROSEMIDE
  32. LEVAQUIN [Concomitant]
     Active Substance: LEVOFLOXACIN
  33. MAGNESIUM CITRATE. [Concomitant]
     Active Substance: MAGNESIUM CITRATE
  34. ESCITALOPRAM [Concomitant]
     Active Substance: ESCITALOPRAM OXALATE
  35. MOMETASONE [Concomitant]
     Active Substance: MOMETASONE
  36. DOCUSATE [Concomitant]
     Active Substance: DOCUSATE
  37. DOXORUBICIN [Suspect]
     Active Substance: DOXORUBICIN
     Route: 042
     Dates: start: 20180911, end: 20181218
  38. NEXIUM [Concomitant]
     Active Substance: ESOMEPRAZOLE MAGNESIUM
     Dosage: MOST RECENT DOSE ON 21/FEB/2019
     Route: 048
  39. ATIVAN [Concomitant]
     Active Substance: LORAZEPAM
  40. MINOCYCLINE [Concomitant]
     Active Substance: MINOCYCLINE\MINOCYCLINE HYDROCHLORIDE
  41. ZOFRAN [Concomitant]
     Active Substance: ONDANSETRON HYDROCHLORIDE
     Indication: VOMITING
  42. NEULASTA [Concomitant]
     Active Substance: PEGFILGRASTIM
  43. SENNA [Concomitant]
     Active Substance: SENNA LEAF\SENNOSIDES\SENNOSIDES A AND B
  44. PROSCAR [Concomitant]
     Active Substance: FINASTERIDE
     Dosage: MOST RECENT DOSE ON 21/FEB/2019
     Route: 048
  45. VENETOCLAX. [Suspect]
     Active Substance: VENETOCLAX
     Indication: RICHTER^S SYNDROME
     Route: 048
     Dates: start: 20180129
  46. RITUXIMAB. [Suspect]
     Active Substance: RITUXIMAB
     Route: 042
     Dates: start: 20180911, end: 20181213
  47. ETOPOSIDE. [Suspect]
     Active Substance: ETOPOSIDE
     Route: 042
     Dates: start: 20180911, end: 20181218
  48. DOXORUBICIN [Suspect]
     Active Substance: DOXORUBICIN
     Indication: RICHTER^S SYNDROME
     Route: 042
     Dates: start: 20180816, end: 20180821
  49. BENADRYL [Concomitant]
     Active Substance: DIPHENHYDRAMINE HYDROCHLORIDE
  50. CYCLOBENZAPRINE. [Concomitant]
     Active Substance: CYCLOBENZAPRINE
  51. COMPAZINE [Concomitant]
     Active Substance: PROCHLORPERAZINE MALEATE
     Indication: NAUSEA
     Dosage: MOST RECENT DOSE ON 22/FEB/2019
     Route: 048
  52. SODIUM CHLORIDE. [Concomitant]
     Active Substance: SODIUM CHLORIDE
     Dosage: MOST RECENT DOSE ON 22/FEB/2019
     Route: 065
  53. ACTIGALL [Concomitant]
     Active Substance: URSODIOL
     Route: 048
  54. ETOPOSIDE. [Suspect]
     Active Substance: ETOPOSIDE
     Indication: RICHTER^S SYNDROME
     Route: 042
     Dates: start: 20180816, end: 20180821
  55. TYLENOL [Concomitant]
     Active Substance: ACETAMINOPHEN
  56. HYDRALAZINE [Concomitant]
     Active Substance: HYDRALAZINE HYDROCHLORIDE
  57. ULTRAM [Concomitant]
     Active Substance: TRAMADOL HYDROCHLORIDE
     Route: 048

REACTIONS (6)
  - Pneumonia [Recovered/Resolved]
  - Febrile neutropenia [Unknown]
  - Lung infection [Unknown]
  - Febrile neutropenia [Unknown]
  - Vomiting [Unknown]
  - Syncope [Recovered/Resolved]

NARRATIVE: CASE EVENT DATE: 20180823
